FAERS Safety Report 7396167-6 (Version None)
Quarter: 2011Q2

REPORT INFORMATION
  Report Type: 
  Country: None (occurrence: None)
  Receive Date: 20110406
  Receipt Date: 20110324
  Transmission Date: 20111010
  Serious: Yes (Hospitalization)
  Sender: FDA-Public Use
  Company Number: US-ELI_LILLY_AND_COMPANY-US201102002829

PATIENT
  Sex: Female

DRUGS (3)
  1. LASIX [Concomitant]
     Indication: FLUID RETENTION
  2. FORTEO [Suspect]
     Indication: OSTEOPOROSIS
     Dosage: 20 UG, QD
     Dates: start: 20101101
  3. FORTEO [Suspect]
     Dosage: 20 UG, QD

REACTIONS (4)
  - WEIGHT INCREASED [None]
  - FLUID RETENTION [None]
  - HOSPITALISATION [None]
  - MALABSORPTION [None]
